FAERS Safety Report 24121303 (Version 1)
Quarter: 2024Q3

REPORT INFORMATION
  Report Type: Spontaneous
  Country: GB (occurrence: GB)
  Receive Date: 20240722
  Receipt Date: 20240722
  Transmission Date: 20241016
  Serious: Yes (Other)
  Sender: BOEHRINGER INGELHEIM
  Company Number: GB-MHRA-TPP21833158C3376152YC1721318896424

PATIENT
  Age: 68 Year
  Sex: Male
  Weight: 84 kg

DRUGS (13)
  1. EMPAGLIFLOZIN [Suspect]
     Active Substance: EMPAGLIFLOZIN
     Indication: Ill-defined disorder
     Dates: start: 20240627
  2. HUMULIN L [Concomitant]
     Active Substance: INSULIN HUMAN
     Indication: Ill-defined disorder
     Dosage: 44 UNITS IN THE MORNING AND IN THE EVENING (RED...
     Dates: start: 20240226
  3. YALTORMIN [Concomitant]
     Indication: Ill-defined disorder
     Dosage: TWO TABLETS IN THE MORNING
     Dates: start: 20240627
  4. INSULIN HUMAN [Concomitant]
     Active Substance: INSULIN HUMAN
     Indication: Ill-defined disorder
     Dosage: 30 UNITS BEFORE BREAKFAST AND EVENING MEAL, 20-...
     Dates: start: 20240718
  5. APIXABAN [Concomitant]
     Active Substance: APIXABAN
     Indication: Ill-defined disorder
     Dates: start: 20240226
  6. ASPIRIN [Concomitant]
     Active Substance: ASPIRIN
     Indication: Ill-defined disorder
     Dates: start: 20240226
  7. ATORVASTATIN [Concomitant]
     Active Substance: ATORVASTATIN
     Indication: Ill-defined disorder
     Dates: start: 20240226
  8. COCODAMOL [Concomitant]
     Active Substance: ACETAMINOPHEN\CODEINE PHOSPHATE
     Indication: Ill-defined disorder
     Dosage: TAKE 1 OR 2 4 TIMES/DAY AS REQUIRED, FOR INTERM...
     Dates: start: 20240226
  9. DULOXETINE [Concomitant]
     Active Substance: DULOXETINE
     Indication: Ill-defined disorder
     Dates: start: 20240226
  10. LANSOPRAZOLE [Concomitant]
     Active Substance: LANSOPRAZOLE
     Indication: Ill-defined disorder
     Dosage: 30 MINUTES BEFORE FOOD
     Dates: start: 20240226
  11. METFORMIN [Concomitant]
     Active Substance: METFORMIN HYDROCHLORIDE
     Indication: Ill-defined disorder
     Dosage: (AS DETERMINED BY MEAL TIMES)
     Dates: start: 20240226, end: 20240628
  12. RAMIPRIL [Concomitant]
     Active Substance: RAMIPRIL
     Indication: Ill-defined disorder
     Dates: start: 20240226
  13. SITAGLIPTIN [Concomitant]
     Active Substance: SITAGLIPTIN
     Indication: Ill-defined disorder
     Dates: start: 20240226, end: 20240628

REACTIONS (5)
  - Polyuria [Unknown]
  - Thirst [Recovering/Resolving]
  - Fatigue [Recovering/Resolving]
  - Malaise [Recovering/Resolving]
  - Dehydration [Unknown]
